FAERS Safety Report 4778280-2 (Version None)
Quarter: 2005Q3

REPORT INFORMATION
  Report Type: 
  Country: None (occurrence: None)
  Receive Date: 20050923
  Receipt Date: 20050923
  Transmission Date: 20060218
  Serious: Yes (Other)
  Sender: FDA-Public Use
  Company Number: None

PATIENT
  Age: 64 Year
  Sex: Male
  Weight: 76.2 kg

DRUGS (4)
  1. LOVASTATIN [Suspect]
  2. TAMSULOSIN HCL [Concomitant]
  3. NIACIN [Concomitant]
  4. METOPROLOL TARTRATE [Concomitant]

REACTIONS (1)
  - MYALGIA [None]
